FAERS Safety Report 6244047-1 (Version None)
Quarter: 2009Q2

REPORT INFORMATION
  Report Type: 
  Country: None (occurrence: None)
  Receive Date: 20090625
  Receipt Date: 20071116
  Transmission Date: 20091009
  Serious: Yes (Hospitalization, Other)
  Sender: FDA-Public Use
  Company Number: US-ASTRAZENECA-2007UW14322

PATIENT
  Age: 38 Year
  Sex: Female
  Weight: 114.3 kg

DRUGS (17)
  1. SEROQUEL [Suspect]
     Indication: BIPOLAR DISORDER
     Dosage: 25 MG - 400 MG
     Route: 048
     Dates: start: 20030430
  2. SEROQUEL [Suspect]
     Indication: DEPRESSION
     Dosage: 25 MG - 400 MG
     Route: 048
     Dates: start: 20030430
  3. SEROQUEL [Suspect]
     Dosage: 25 MG THEN 150 MG
     Route: 048
     Dates: start: 20050301, end: 20050404
  4. SEROQUEL [Suspect]
     Dosage: 25 MG THEN 150 MG
     Route: 048
     Dates: start: 20050301, end: 20050404
  5. ABILIFY [Concomitant]
  6. DEPAKOTE [Concomitant]
     Dosage: 500 MG - 1500 MG
     Dates: start: 20050721
  7. ACTOS [Concomitant]
     Dosage: 30 MG - 45 MG
     Dates: start: 20060831
  8. CLONAZEPAM [Concomitant]
     Dosage: 1 MG - 2 MG
     Dates: start: 20050719
  9. HUMULIN R [Concomitant]
     Dates: start: 20050429
  10. LEXAPRO [Concomitant]
     Dosage: 10 MG -20 MG
     Dates: start: 20040814
  11. SINGULAIR [Concomitant]
     Dates: start: 20050324
  12. PROCHLORPERAZINE [Concomitant]
     Dosage: 5 MG -10 MG
     Dates: start: 20010903
  13. PROVIGIL [Concomitant]
     Dates: start: 20061222
  14. SPIRONOLACTONE [Concomitant]
     Dates: start: 20010709
  15. TRAZODONE HCL [Concomitant]
     Dosage: 50MG -100MG
     Dates: start: 20021227
  16. LEVOTHYROXINE [Concomitant]
     Dosage: 0.05MG - 0.1MG
     Route: 048
     Dates: start: 20010901
  17. PREDNISONE [Concomitant]
     Dosage: 20 MG - 50 MG
     Dates: start: 20040403

REACTIONS (20)
  - ASTHMA [None]
  - BIPOLAR DISORDER [None]
  - BLOOD POTASSIUM DECREASED [None]
  - BLOOD TRIGLYCERIDES INCREASED [None]
  - DEHYDRATION [None]
  - EOSINOPHIL COUNT INCREASED [None]
  - HAEMOGLOBIN DECREASED [None]
  - HYPOTHYROIDISM [None]
  - INJURY [None]
  - NAUSEA [None]
  - NEPHRITIS [None]
  - NEUROPATHY PERIPHERAL [None]
  - RENAL CYST [None]
  - RENAL FAILURE [None]
  - RENAL FAILURE ACUTE [None]
  - SINUSITIS [None]
  - TUBULOINTERSTITIAL NEPHRITIS [None]
  - TYPE 1 DIABETES MELLITUS [None]
  - TYPE 2 DIABETES MELLITUS [None]
  - VOMITING [None]
